FAERS Safety Report 5182094-1 (Version None)
Quarter: 2006Q4

REPORT INFORMATION
  Report Type: 
  Country: None (occurrence: None)
  Receive Date: 20061220
  Receipt Date: 20060512
  Transmission Date: 20070319
  Serious: No
  Sender: FDA-Public Use
  Company Number: US-GLAXOSMITHKLINE-A0605349A

PATIENT
  Age: 67 Year
  Sex: Female

DRUGS (1)
  1. COMMIT [Suspect]
     Dates: start: 20060501, end: 20060511

REACTIONS (3)
  - HICCUPS [None]
  - ORAL DISCOMFORT [None]
  - STOMACH DISCOMFORT [None]
